FAERS Safety Report 8041433-4 (Version None)
Quarter: 2012Q1

REPORT INFORMATION
  Report Type: 
  Country: None (occurrence: None)
  Receive Date: 20120112
  Receipt Date: 20120110
  Transmission Date: 20120608
  Serious: Yes (Other)
  Sender: FDA-Public Use
  Company Number: US-PFIZER INC-2012007898

PATIENT
  Sex: Female
  Weight: 74.83 kg

DRUGS (9)
  1. XANAX [Suspect]
     Indication: SLEEP DISORDER
     Dosage: UNK
     Route: 048
  2. PRISTIQ [Suspect]
     Indication: INSOMNIA
     Dosage: UNK
     Route: 048
     Dates: start: 20110101
  3. LORTAB [Suspect]
     Indication: HEADACHE
     Dosage: UNK
  4. PRISTIQ [Suspect]
     Indication: STRESS AT WORK
     Dosage: 100 MG,DAILY
     Route: 048
     Dates: start: 20110601, end: 20110101
  5. FIORICET [Suspect]
     Indication: HEADACHE
     Dosage: UNK
  6. ZOFRAN [Suspect]
     Indication: NAUSEA
  7. PROMETHAZINE [Suspect]
     Indication: VOMITING PROJECTILE
  8. ZOFRAN [Suspect]
     Indication: VOMITING PROJECTILE
     Dosage: UNK
  9. PROMETHAZINE [Suspect]
     Indication: NAUSEA
     Dosage: UNK

REACTIONS (9)
  - MEMORY IMPAIRMENT [None]
  - AGGRESSION [None]
  - DISTURBANCE IN ATTENTION [None]
  - ANGER [None]
  - HEADACHE [None]
  - VOMITING PROJECTILE [None]
  - NAUSEA [None]
  - DRUG INEFFECTIVE [None]
  - HYPOAESTHESIA [None]
